FAERS Safety Report 5542809-7 (Version None)
Quarter: 2007Q4

REPORT INFORMATION
  Report Type: 
  Country: None (occurrence: None)
  Receive Date: 20071207
  Receipt Date: 20071127
  Transmission Date: 20080405
  Serious: Yes (Other)
  Sender: FDA-Public Use
  Company Number: 2007US002923

PATIENT
  Age: 36 Year
  Sex: Male

DRUGS (4)
  1. PROGRAF [Suspect]
     Indication: BONE MARROW TRANSPLANT
  2. PREDNISOLONE ACETATE [Suspect]
     Indication: BONE MARROW TRANSPLANT
  3. MYCOPHENOLATE MOFETIL [Suspect]
     Indication: BONE MARROW TRANSPLANT
  4. HYDROXYCHLOROQUINE SULFATE [Suspect]
     Indication: BONE MARROW TRANSPLANT

REACTIONS (1)
  - GRAFT VERSUS HOST DISEASE [None]
